FAERS Safety Report 20958567 (Version 11)
Quarter: 2023Q1

REPORT INFORMATION
  Report Type: Report from Study
  Country: PE (occurrence: None)
  Receive Date: 20220614
  Receipt Date: 20230331
  Transmission Date: 20230418
  Serious: Yes (Other)
  Sender: FDA-Public Use
  Company Number: PE-ROCHE-3116015

PATIENT
  Age: 27 Year
  Sex: Female
  Weight: 51.5 kg

DRUGS (19)
  1. PLACEBO [Suspect]
     Active Substance: UNSPECIFIED INGREDIENT
     Indication: Relapsing-remitting multiple sclerosis
     Dosage: 31/JAN/2013, 04/JUL/2013, 20/DEC/2013, 06/JUN/2014
     Route: 042
     Dates: start: 20130116, end: 20130116
  2. INTERFERON BETA-1A [Suspect]
     Active Substance: INTERFERON BETA-1A
     Indication: Relapsing-remitting multiple sclerosis
     Route: 058
     Dates: start: 20130116, end: 20130116
  3. INTERFERON BETA-1A [Suspect]
     Active Substance: INTERFERON BETA-1A
     Route: 058
     Dates: start: 20141121, end: 20141126
  4. OCRELIZUMAB [Suspect]
     Active Substance: OCRELIZUMAB
     Indication: Relapsing-remitting multiple sclerosis
     Dosage: 11/DEC/2014 (1128191)
     Route: 042
     Dates: start: 20141127, end: 20141127
  5. OCRELIZUMAB [Suspect]
     Active Substance: OCRELIZUMAB
     Dosage: 29/OCT/2015 (1148913), 15/APR/2016 (1148913), 01/DEC/2016 (1152997), 04/MAY/2017 (1152997), 06/OCT/2
     Route: 042
     Dates: start: 20150515, end: 20150515
  6. CHLORPHENIRAMINE MALEATE [Concomitant]
     Active Substance: CHLORPHENIRAMINE MALEATE
     Dosage: 31/JAN/2013, 04/JUL/2013, 20/DEC/2013, 06/JUN/2014, 27/NOV/2014, 11/DEC/2014, 15/MAY/2015, 29/OCT/20
     Dates: start: 20130116
  7. ACETAMINOPHEN [Concomitant]
     Active Substance: ACETAMINOPHEN
     Indication: Gastroenteritis
     Dosage: 31/JAN/2013, 02/JUN/2013, 22/JUN/2013, 04/JUL/2013, 20/DEC/2013, 06/JUN/2014, 27/NOV/2014, 11/DEC/20
     Dates: start: 20130116
  8. ACETAMINOPHEN [Concomitant]
     Active Substance: ACETAMINOPHEN
     Indication: Pharyngitis
  9. METHYLPREDNISOLONE [Concomitant]
     Active Substance: METHYLPREDNISOLONE
     Indication: Multiple sclerosis relapse
     Dosage: 31/JAN/2013, 04/JUL/2013, 20/DEC/2013, 06/JUN/2014, 27/NOV/2014, 11/DEC/2014, 29/OCT/2015, 15/APR/20
     Dates: start: 20130116
  10. PANADOL [Concomitant]
     Active Substance: ACETAMINOPHEN
     Dosage: 10/SEP/2021, 25/MAR/2022
     Dates: start: 20210128
  11. CIPROFLOXACIN [Concomitant]
     Active Substance: CIPROFLOXACIN
     Indication: Gastroenteritis
     Dates: start: 20130603, end: 20130608
  12. CIPROFLOXACIN [Concomitant]
     Active Substance: CIPROFLOXACIN
     Indication: Gastroenteritis
     Dates: start: 20131104, end: 20131109
  13. BACILLUS SUBTILIS [Concomitant]
     Active Substance: BACILLUS SUBTILIS
     Indication: Gastroenteritis
     Dosage: 1.00 AMPULE(S)
     Dates: start: 20131104, end: 20131109
  14. LEVOTHYROXINE [Concomitant]
     Active Substance: LEVOTHYROXINE
     Indication: Hypothyroidism
     Dosage: 16/JUL/2014
     Dates: start: 199412, end: 20130607
  15. LEVOTHYROXINE [Concomitant]
     Active Substance: LEVOTHYROXINE
     Dates: start: 20130608, end: 20140715
  16. LEVOTHYROXINE [Concomitant]
     Active Substance: LEVOTHYROXINE
     Dates: start: 20140716
  17. AMOXICILLIN\CLAVULANIC ACID [Concomitant]
     Active Substance: AMOXICILLIN\CLAVULANIC ACID
     Indication: Laryngitis
     Dosage: 09/JUN/2014
     Dates: start: 20130622, end: 20130626
  18. AMOXICILLIN\CLAVULANIC ACID [Concomitant]
     Active Substance: AMOXICILLIN\CLAVULANIC ACID
     Indication: Pharyngitis
  19. BUSCAPINA [HYOSCINE BUTYLBROMIDE] [Concomitant]
     Indication: Gastroenteritis
     Dates: start: 20131104, end: 20131104

REACTIONS (1)
  - Pulmonary tuberculosis [Recovering/Resolving]

NARRATIVE: CASE EVENT DATE: 20220608
